FAERS Safety Report 6198705-8 (Version None)
Quarter: 2009Q2

REPORT INFORMATION
  Report Type: 
  Country: None (occurrence: None)
  Receive Date: 20090521
  Receipt Date: 20090514
  Transmission Date: 20091009
  Serious: Yes (Hospitalization)
  Sender: FDA-Public Use
  Company Number: PHHO2009FR05271

PATIENT
  Sex: Male
  Weight: 88 kg

DRUGS (2)
  1. EXELON [Suspect]
     Indication: DEMENTIA
     Dosage: 3 MG , TWO CAPSULES PER DAY
     Route: 048
     Dates: start: 20090131
  2. EXELON [Suspect]
     Dosage: 1.5 MG, TWO CAPSULES PER DAY
     Route: 048

REACTIONS (3)
  - DEPRESSED LEVEL OF CONSCIOUSNESS [None]
  - PARKINSONISM [None]
  - SALIVARY HYPERSECRETION [None]
